FAERS Safety Report 24559864 (Version 1)
Quarter: 2024Q4

REPORT INFORMATION
  Report Type: Spontaneous
  Country: US (occurrence: None)
  Receive Date: 20241028
  Receipt Date: 20241028
  Transmission Date: 20250114
  Serious: Yes (Hospitalization)
  Sender: Public
  Company Number: None

PATIENT
  Age: 6 Year
  Sex: Male

DRUGS (4)
  1. ALTUVIIIO [Suspect]
     Active Substance: EFANESOCTOCOG ALFA
     Indication: Factor VIII deficiency
     Dosage: OTHER QUANTITY : 1150 UNITS;?FREQUENCY : AS NEEDED;?STRENGTH: 1000
     Route: 042
     Dates: start: 202405
  2. ALTUVIIIO [Suspect]
     Active Substance: EFANESOCTOCOG ALFA
     Indication: Factor VIII deficiency
     Dosage: OTHER QUANTITY : 1150 UNITS;?FREQUENCY : AS NEEDED;?STRENGTH: 250
     Route: 042
     Dates: start: 202405
  3. AMINOCAPROIC ACID [Concomitant]
     Active Substance: AMINOCAPROIC ACID
  4. HEMLIBRA [Concomitant]
     Active Substance: EMICIZUMAB-KXWH

REACTIONS (4)
  - Haemorrhage [None]
  - Face injury [None]
  - Limb injury [None]
  - Injury [None]

NARRATIVE: CASE EVENT DATE: 20241020
